FAERS Safety Report 22679816 (Version 2)
Quarter: 2025Q1

REPORT INFORMATION
  Report Type: Spontaneous
  Country: FI (occurrence: FI)
  Receive Date: 20230707
  Receipt Date: 20250312
  Transmission Date: 20250409
  Serious: Yes (Other)
  Sender: JOHNSON AND JOHNSON
  Company Number: FI-FIMEA-202119844

PATIENT
  Age: 65 Year
  Sex: Female

DRUGS (7)
  1. RISPERDAL [Suspect]
     Active Substance: RISPERIDONE
     Indication: Acute psychosis
     Route: 065
     Dates: start: 1996, end: 2020
  2. RISPERDAL [Suspect]
     Active Substance: RISPERIDONE
     Indication: Product used for unknown indication
  3. RISPERIDONE [Suspect]
     Active Substance: RISPERIDONE
     Indication: Prophylaxis
     Route: 065
     Dates: start: 20010723, end: 202010
  4. RISPERIDONE [Suspect]
     Active Substance: RISPERIDONE
     Indication: Psychotic disorder
  5. LORAZEPAM [Suspect]
     Active Substance: LORAZEPAM
  6. TEMAZEPAM [Suspect]
     Active Substance: TEMAZEPAM
  7. HALOPERIDOL [Concomitant]
     Active Substance: HALOPERIDOL

REACTIONS (8)
  - Drug dependence [Unknown]
  - Skin lesion inflammation [Unknown]
  - Laboratory test abnormal [Unknown]
  - Drug withdrawal syndrome [Unknown]
  - Pruritus [Unknown]
  - Skin mass [Unknown]
  - Scar [Unknown]
  - Neurodermatitis [Unknown]

NARRATIVE: CASE EVENT DATE: 20200615
